FAERS Safety Report 5873890-3 (Version None)
Quarter: 2008Q3

REPORT INFORMATION
  Report Type: 
  Country: None (occurrence: None)
  Receive Date: 20080908
  Receipt Date: 20080829
  Transmission Date: 20090109
  Serious: Yes (Hospitalization)
  Sender: FDA-Public Use
  Company Number: JP-ASTRAZENECA-2008AP06880

PATIENT
  Age: 63 Year
  Sex: Male

DRUGS (5)
  1. OMEPRAZOLE [Suspect]
     Route: 048
  2. RICAMYCIN [Suspect]
     Route: 048
  3. ASVERIN [Concomitant]
     Route: 048
  4. BISOLVON [Concomitant]
     Route: 048
  5. FAMOTIDINE [Concomitant]
     Indication: GASTRIC ULCER HAEMORRHAGE
     Route: 048

REACTIONS (1)
  - INTERSTITIAL LUNG DISEASE [None]
